FAERS Safety Report 7607011-3 (Version None)
Quarter: 2011Q3

REPORT INFORMATION
  Report Type: 
  Country: None (occurrence: None)
  Receive Date: 20110712
  Receipt Date: 20110712
  Transmission Date: 20111222
  Serious: Yes (Hospitalization)
  Sender: FDA-Public Use
  Company Number: None

PATIENT
  Age: 81 Year
  Sex: Male
  Weight: 63.6 kg

DRUGS (2)
  1. WARFARIN SODIUM [Suspect]
     Indication: ATRIAL FIBRILLATION
     Dosage: 4 MG EVERY DAY PO
     Route: 048
     Dates: start: 20110418, end: 20110506
  2. ASPIRIN [Suspect]
     Indication: CEREBROVASCULAR ACCIDENT
     Dosage: 81 MG EVERY DAY PO
     Route: 048
     Dates: start: 20110414, end: 20110505

REACTIONS (4)
  - GASTRITIS HAEMORRHAGIC [None]
  - INTERNATIONAL NORMALISED RATIO INCREASED [None]
  - HIATUS HERNIA [None]
  - HAEMOGLOBIN DECREASED [None]
